FAERS Safety Report 8438694-6 (Version None)
Quarter: 2012Q2

REPORT INFORMATION
  Report Type: 
  Country: None (occurrence: None)
  Receive Date: 20120615
  Receipt Date: 20120603
  Transmission Date: 20120825
  Serious: Yes (Other)
  Sender: FDA-Public Use
  Company Number: JP-ELI_LILLY_AND_COMPANY-JP201204000505

PATIENT
  Age: 75 Year
  Sex: Female

DRUGS (2)
  1. FORTEO [Suspect]
     Dosage: UNK
     Route: 058
     Dates: start: 20120326
  2. ANTI-ASTHMATICS [Concomitant]
     Indication: ASTHMA
     Route: 048

REACTIONS (3)
  - INJECTION SITE HAEMATOMA [None]
  - DIZZINESS [None]
  - ARTHROPATHY [None]
